FAERS Safety Report 14901969 (Version 1)
Quarter: 2018Q2

REPORT INFORMATION
  Report Type: Report from Study
  Country: GB (occurrence: GB)
  Receive Date: 20180516
  Receipt Date: 20180516
  Transmission Date: 20180711
  Serious: Yes (Other)
  Sender: FDA-Public Use
  Company Number: GB-JNJFOC-20180406882

PATIENT
  Age: 65 Year
  Sex: Female

DRUGS (1)
  1. SIMPONI [Suspect]
     Active Substance: GOLIMUMAB
     Indication: ARTHRITIS
     Route: 058

REACTIONS (13)
  - Localised infection [Unknown]
  - Inappropriate schedule of drug administration [Unknown]
  - Abdominal pain upper [Unknown]
  - Drug intolerance [Unknown]
  - Asthenia [Unknown]
  - Off label use [Unknown]
  - Urinary tract infection [Unknown]
  - Dizziness [Unknown]
  - Arthritis [Unknown]
  - Drug dose omission [Unknown]
  - Vomiting [Unknown]
  - Malaise [Unknown]
  - Hypersomnia [Unknown]

NARRATIVE: CASE EVENT DATE: 2018
